FAERS Safety Report 25032890 (Version 1)
Quarter: 2025Q1

REPORT INFORMATION
  Report Type: Spontaneous
  Country: US (occurrence: None)
  Receive Date: 20250228
  Receipt Date: 20250228
  Transmission Date: 20250409
  Serious: Yes (Life-Threatening, Hospitalization, Other)
  Sender: FDA-CTU
  Company Number: None

PATIENT
  Age: 77 Year
  Sex: Female
  Weight: 71 kg

DRUGS (1)
  1. PIRTOBRUTINIB [Suspect]
     Active Substance: PIRTOBRUTINIB
     Dates: start: 20250226

REACTIONS (2)
  - Pulmonary oedema [None]
  - White blood cell count increased [None]

NARRATIVE: CASE EVENT DATE: 20250227
